FAERS Safety Report 4757095-5 (Version None)
Quarter: 2005Q3

REPORT INFORMATION
  Report Type: 
  Country: None (occurrence: None)
  Receive Date: 20050829
  Receipt Date: 20050829
  Transmission Date: 20060218
  Serious: Yes (Life-Threatening)
  Sender: FDA-Public Use
  Company Number: None

PATIENT
  Sex: Female
  Weight: 75 kg

DRUGS (17)
  1. AVASTIN [Suspect]
     Indication: COLON CANCER STAGE III
     Dosage: 5MG/KG = 375 MG   Q 14 DAYS   IV DRIP
     Route: 041
     Dates: start: 20050802, end: 20050802
  2. ALOXI [Concomitant]
  3. DECADRON [Concomitant]
  4. MAGNESIUM SULFATE [Concomitant]
  5. OXALAPLATIN CALCIUM GLUCONATE [Concomitant]
  6. OXALAPLATIN [Concomitant]
  7. LEUCOVORIN [Concomitant]
  8. MAGNESIUM SULFATE [Concomitant]
  9. CALCIUM GLUCONATE [Concomitant]
  10. FLUOROURACIL [Concomitant]
  11. SPIRONOLACTALONE/HCTZ [Concomitant]
  12. CARDIZEM [Concomitant]
  13. LIPITOR [Concomitant]
  14. TRAZODONE [Concomitant]
  15. FERROUS SULFATE [Concomitant]
  16. CLARITIN [Concomitant]
  17. COLACE [Concomitant]

REACTIONS (5)
  - CARDIOMYOPATHY [None]
  - CHEST PAIN [None]
  - EJECTION FRACTION DECREASED [None]
  - VENTRICULAR FIBRILLATION [None]
  - VENTRICULAR TACHYCARDIA [None]
